FAERS Safety Report 15372505 (Version 1)
Quarter: 2018Q3

REPORT INFORMATION
  Report Type: Spontaneous
  Country: FR (occurrence: FR)
  Receive Date: 20180911
  Receipt Date: 20180911
  Transmission Date: 20181010
  Serious: Yes (Other)
  Sender: FDA-Public Use
  Company Number: FR-NOVOPROD-597647

PATIENT
  Age: 38 Year
  Sex: Female
  Weight: 80 kg

DRUGS (6)
  1. INORIAL [Concomitant]
     Active Substance: BILASTINE
     Indication: HYPERSENSITIVITY
     Dosage: 10 MG, BID
     Route: 048
     Dates: start: 2017
  2. FIASP [Suspect]
     Active Substance: INSULIN ASPART
     Indication: PRODUCT USED FOR UNKNOWN INDICATION
     Dosage: UNK
     Route: 065
     Dates: start: 20180407, end: 20180414
  3. FIASP [Suspect]
     Active Substance: INSULIN ASPART
     Dosage: REINTRODUCED THE DRUG
     Route: 065
  4. NEXPLANON [Concomitant]
     Active Substance: ETONOGESTREL
     Indication: CONTRACEPTION
     Dosage: UNK
     Dates: start: 2017
  5. FIASP [Suspect]
     Active Substance: INSULIN ASPART
     Dosage: 15 U IN THE MORNING
     Route: 065
     Dates: start: 20180423
  6. FIASP [Suspect]
     Active Substance: INSULIN ASPART
     Dosage: UNK
     Route: 065

REACTIONS (3)
  - Hyperglycaemia [Recovered/Resolved]
  - Drug ineffective [Unknown]
  - Ketosis [Unknown]

NARRATIVE: CASE EVENT DATE: 201804
